FAERS Safety Report 6252844-1 (Version None)
Quarter: 2009Q2

REPORT INFORMATION
  Report Type: 
  Country: None (occurrence: None)
  Receive Date: 20090629
  Receipt Date: 20090629
  Transmission Date: 20091009
  Serious: Yes (Hospitalization, Disabling)
  Sender: FDA-Public Use
  Company Number: None

PATIENT
  Age: 54 Year
  Sex: Female
  Weight: 99.7913 kg

DRUGS (12)
  1. CHLOROPROACINE HCL [Suspect]
     Indication: EPIDURAL ANAESTHESIA
     Dosage: 16 MLS ONCE EPIDURAL
     Route: 008
     Dates: start: 20090410, end: 20090410
  2. POLOCAINE-MPF [Suspect]
     Indication: EPIDURAL ANAESTHESIA
     Dosage: 6 MLS ONCE EPIDURAL
     Route: 008
     Dates: start: 20090410, end: 20090410
  3. LIDOCAINE [Concomitant]
  4. ROPIVACAINE [Concomitant]
  5. MEPIVACAINE HCL [Concomitant]
  6. MIDAZOLAM HCL [Concomitant]
  7. FENTANYL [Concomitant]
  8. DIPHENHYDRAMINE HCL [Concomitant]
  9. PROPOFOL [Concomitant]
  10. EPHEDRINE [Concomitant]
  11. ZOFRAN [Concomitant]
  12. KEOROLAC [Concomitant]

REACTIONS (3)
  - BLADDER DISTENSION [None]
  - FAECAL INCONTINENCE [None]
  - URINARY INCONTINENCE [None]
